FAERS Safety Report 12985945 (Version 2)
Quarter: 2016Q4

REPORT INFORMATION
  Report Type: Spontaneous
  Country: US (occurrence: US)
  Receive Date: 20161130
  Receipt Date: 20161201
  Transmission Date: 20170207
  Serious: Yes (Death)
  Sender: FDA-Public Use
  Company Number: US-ROCHE-1861533

PATIENT
  Age: 72 Year
  Sex: Male

DRUGS (1)
  1. ZELBORAF [Suspect]
     Active Substance: VEMURAFENIB
     Indication: NEOPLASM MALIGNANT
     Dosage: 240 MG
     Route: 048
     Dates: start: 20161026, end: 20161117

REACTIONS (1)
  - Death [Fatal]

NARRATIVE: CASE EVENT DATE: 20161128
